FAERS Safety Report 21373163 (Version 1)
Quarter: 2022Q3

REPORT INFORMATION
  Report Type: Spontaneous
  Country: US (occurrence: US)
  Receive Date: 20220924
  Receipt Date: 20220924
  Transmission Date: 20221027
  Serious: No
  Sender: FDA-Public Use
  Company Number: US-CTI BIOPHARMA-2022US02924

PATIENT
  Age: 75 Year
  Sex: Male
  Weight: 124.98 kg

DRUGS (1)
  1. VONJO [Suspect]
     Active Substance: PACRITINIB
     Indication: Myeloproliferative neoplasm
     Dosage: 200 MILLIGRAM, BID
     Route: 048

REACTIONS (6)
  - Asthenia [Unknown]
  - Transfusion [Unknown]
  - Product dose omission issue [None]
  - Diarrhoea [Recovering/Resolving]
  - Nausea [Recovering/Resolving]
  - Dyspnoea exertional [None]

NARRATIVE: CASE EVENT DATE: 20220101
